FAERS Safety Report 13699736 (Version 1)
Quarter: 2017Q2

REPORT INFORMATION
  Report Type: Spontaneous
  Country: HU (occurrence: HU)
  Receive Date: 20170629
  Receipt Date: 20170629
  Transmission Date: 20170830
  Serious: Yes (Other)
  Sender: FDA-Public Use
  Company Number: HU-ROCHE-1956674

PATIENT
  Age: 46 Year
  Sex: Female

DRUGS (3)
  1. HERCEPTIN [Suspect]
     Active Substance: TRASTUZUMAB
     Indication: BREAST NEOPLASM
     Route: 065
     Dates: start: 20160929
  2. PERJETA [Concomitant]
     Active Substance: PERTUZUMAB
     Indication: BREAST NEOPLASM
     Route: 041
     Dates: start: 20160929
  3. ZITAZONIUM [Concomitant]
     Active Substance: TAMOXIFEN CITRATE
     Indication: BREAST NEOPLASM
     Route: 048
     Dates: start: 20150721

REACTIONS (3)
  - Rhinorrhoea [Not Recovered/Not Resolved]
  - Nasal mucosa atrophy [Not Recovered/Not Resolved]
  - Nasal mucosal ulcer [Not Recovered/Not Resolved]

NARRATIVE: CASE EVENT DATE: 20170320
